FAERS Safety Report 22337264 (Version 1)
Quarter: 2023Q2

REPORT INFORMATION
  Report Type: Spontaneous
  Country: US (occurrence: None)
  Receive Date: 20230517
  Receipt Date: 20230517
  Transmission Date: 20230722
  Serious: No
  Sender: FDA-Public Use
  Company Number: None

PATIENT
  Age: 69 Year
  Sex: Male
  Weight: 74.84 kg

DRUGS (28)
  1. ABIRATERONE ACETATE [Suspect]
     Active Substance: ABIRATERONE ACETATE
     Indication: Prostate cancer
     Dosage: FREQUENCY : DAILY;?
     Route: 048
  2. ACYCLOVIR [Concomitant]
     Active Substance: ACYCLOVIR
  3. AMINO ACIDS [Concomitant]
     Active Substance: AMINO ACIDS
  4. CASODEX [Concomitant]
     Active Substance: BICALUTAMIDE
  5. DEXAMETHASONE [Concomitant]
     Active Substance: DEXAMETHASONE
  6. ELECTROLYTES NOS [Concomitant]
     Active Substance: ELECTROLYTES NOS
  7. ELIQUIS [Concomitant]
     Active Substance: APIXABAN
  8. FOLIC ACID [Concomitant]
     Active Substance: FOLIC ACID
  9. LENALIDOMIDE [Concomitant]
     Active Substance: LENALIDOMIDE
  10. LUPRON DEPOT [Concomitant]
     Active Substance: LEUPROLIDE ACETATE
  11. MULTI-VITAMIN [Concomitant]
  12. OLMESARTAN-AMLODIPINE-HYDROCHLOROTHIAZIDE [Concomitant]
  13. ONDANSETRON [Concomitant]
  14. OXYCODONE [Concomitant]
     Active Substance: OXYCODONE
  15. POTASSIUM [Concomitant]
     Active Substance: POTASSIUM
  16. PRADAXA [Concomitant]
     Active Substance: DABIGATRAN ETEXILATE MESYLATE
  17. PROTEIN POWDER [Concomitant]
  18. REVLIMID [Concomitant]
     Active Substance: LENALIDOMIDE
  19. MAGNESIUM [Concomitant]
  20. THALOMID [Concomitant]
     Active Substance: THALIDOMIDE
  21. TRAMADOL [Concomitant]
  22. VELCADE [Concomitant]
     Active Substance: BORTEZOMIB
  23. VITAMIN A [Concomitant]
     Active Substance: VITAMIN A
  24. VITAMIN B12 [Concomitant]
     Active Substance: CYANOCOBALAMIN
  25. VITAMIN D [Concomitant]
     Active Substance: VITAMIN D NOS
  26. VITAMIN E [Concomitant]
     Active Substance: .ALPHA.-TOCOPHEROL
  27. VITAMIN B COMPLEX [Concomitant]
     Active Substance: CYANOCOBALAMIN\DEXPANTHENOL\NIACINAMIDE\PYRIDOXINE HYDROCHLORIDE\RIBOFLAVIN 5^-PHOSPHATE SODIUM\THIA
  28. XTANDI [Concomitant]
     Active Substance: ENZALUTAMIDE

REACTIONS (2)
  - Therapy interrupted [None]
  - Plasma cell myeloma [None]
